FAERS Safety Report 9175640 (Version 1)
Quarter: 2012Q4

REPORT INFORMATION
  Report Type: 
  Country: JP (occurrence: JP)
  Receive Date: 20120915
  Receipt Date: 20120915
  Transmission Date: 20130627
  Serious: Yes (Other)
  Sender: FDA-Public Use
  Company Number: JP-MERCK-2012SP029142

PATIENT

DRUGS (4)
  1. ESLAX [Suspect]
     Indication: HYPOTONIA
     Dosage: continuous administration
     Route: 042
     Dates: start: 20120521, end: 20120523
  2. ESLAX [Suspect]
     Indication: RESPIRATORY THERAPY
  3. ESLAX [Suspect]
     Indication: NEUROMUSCULAR BLOCKING THERAPY
  4. BRIDION INTRAVENOUS 200MG [Suspect]
     Dosage: 1 UNK, UNK
     Route: 042
     Dates: start: 20120524, end: 20120524

REACTIONS (2)
  - Neuromuscular block prolonged [Recovered/Resolved]
  - Recurrence of neuromuscular blockade [Recovered/Resolved]
